FAERS Safety Report 9184744 (Version 1)
Quarter: 2013Q1

REPORT INFORMATION
  Report Type: Report from Study
  Country: US (occurrence: US)
  Receive Date: 20130324
  Receipt Date: 20130324
  Transmission Date: 20140127
  Serious: Yes (Other)
  Sender: FDA-Public Use
  Company Number: US-BAXTER-2013BAX011001

PATIENT
  Sex: 0

DRUGS (6)
  1. CYCLOPHOSPHAMIDE FOR INJECTION, USP [Suspect]
     Indication: B-CELL LYMPHOMA
  2. CYCLOPHOSPHAMIDE FOR INJECTION, USP [Suspect]
     Dosage: 1.5 G/M^2 DL-2
  3. DOXORUBICIN [Suspect]
     Indication: B-CELL LYMPHOMA
  4. VINCRISTINE [Suspect]
     Indication: B-CELL LYMPHOMA
  5. PREDNISONE [Suspect]
     Indication: B-CELL LYMPHOMA
  6. G-CSF [Concomitant]
     Indication: B-CELL LYMPHOMA

REACTIONS (1)
  - Neoplasm [Unknown]
